FAERS Safety Report 7913856-2 (Version None)
Quarter: 2011Q4

REPORT INFORMATION
  Report Type: 
  Country: None (occurrence: None)
  Receive Date: 20111115
  Receipt Date: 20111104
  Transmission Date: 20120403
  Serious: Yes (Other)
  Sender: FDA-Public Use
  Company Number: US-BAYER-201033432NA

PATIENT
  Sex: Female
  Weight: 91 kg

DRUGS (1)
  1. YAZ [Suspect]
     Dosage: UNK
     Dates: start: 20020101, end: 20090101

REACTIONS (8)
  - SCAR [None]
  - ABDOMINAL DISTENSION [None]
  - ANXIETY [None]
  - DEPRESSION [None]
  - DYSPEPSIA [None]
  - CONSTIPATION [None]
  - DIARRHOEA [None]
  - CHOLECYSTECTOMY [None]
